FAERS Safety Report 6834777-2 (Version None)
Quarter: 2010Q3

REPORT INFORMATION
  Report Type: 
  Country: None (occurrence: None)
  Receive Date: 20100712
  Receipt Date: 20070418
  Transmission Date: 20110219
  Serious: No
  Sender: FDA-Public Use
  Company Number: US-PFIZER INC-2007031566

PATIENT
  Sex: Male
  Weight: 100 kg

DRUGS (3)
  1. CHANTIX [Suspect]
     Indication: SMOKING CESSATION THERAPY
     Dates: start: 20070401
  2. MULTIPLE VITAMINS [Concomitant]
  3. KLONOPIN [Concomitant]
     Indication: ANXIETY

REACTIONS (5)
  - AGGRESSION [None]
  - ANGER [None]
  - IRRITABILITY [None]
  - NAUSEA [None]
  - SOCIAL AVOIDANT BEHAVIOUR [None]
